FAERS Safety Report 14360201 (Version 1)
Quarter: 2018Q1

REPORT INFORMATION
  Report Type: Spontaneous
  Country: US (occurrence: US)
  Receive Date: 20180106
  Receipt Date: 20180106
  Transmission Date: 20180509
  Serious: Yes (Death, Life-Threatening, Other)
  Sender: FDA-Public Use
  Company Number: US-ACCORD-062565

PATIENT
  Age: 34 Year
  Sex: Male
  Weight: 99.7 kg

DRUGS (9)
  1. AMITRIPTYLINE [Suspect]
     Active Substance: AMITRIPTYLINE
  2. DIAZEPAM. [Suspect]
     Active Substance: DIAZEPAM
  3. 3-FLUOROPHENMETRAZINE [Suspect]
     Active Substance: 3-FLUOROPHENMETRAZINE
     Dosage: 5582 MG
  4. TEMAZEPAM. [Suspect]
     Active Substance: TEMAZEPAM
  5. DELORAZEPAM [Suspect]
     Active Substance: DELORAZEPAM
  6. AMFETAMINE [Suspect]
     Active Substance: AMPHETAMINE
  7. U-47700 [Suspect]
     Active Substance: U-47700
  8. METAMFETAMINE [Suspect]
     Active Substance: METHAMPHETAMINE
  9. FLUBROMAZOLAM [Suspect]
     Active Substance: FLUBROMAZOLAM

REACTIONS (5)
  - Arrhythmia [Fatal]
  - Sedation [Fatal]
  - Respiratory depression [Fatal]
  - Toxicity to various agents [Fatal]
  - Drug abuse [Unknown]
